FAERS Safety Report 20659229 (Version 2)
Quarter: 2022Q2

REPORT INFORMATION
  Report Type: Report from Study
  Country: US (occurrence: US)
  Receive Date: 20220331
  Receipt Date: 20220422
  Transmission Date: 20220721
  Serious: Yes (Hospitalization)
  Sender: FDA-Public Use
  Company Number: US-DECIPHERA PHARMACEUTICALS LLC-2022US000248

PATIENT
  Age: 49 Year
  Sex: Female
  Weight: 62.1 kg

DRUGS (51)
  1. RIPRETINIB [Suspect]
     Active Substance: RIPRETINIB
     Indication: Gastrointestinal stromal tumour
     Dosage: 150 MILLIGRAM, QD
     Route: 048
     Dates: start: 20200203, end: 20200225
  2. RIPRETINIB [Suspect]
     Active Substance: RIPRETINIB
     Dosage: 100 MILLIGRAM, QD
     Route: 048
     Dates: start: 20200225, end: 20220321
  3. RIPRETINIB [Suspect]
     Active Substance: RIPRETINIB
     Dosage: UNK
     Route: 048
     Dates: start: 20220415
  4. DICYCLOMINE [Concomitant]
     Active Substance: DICYCLOMINE HYDROCHLORIDE
     Indication: Abdominal rigidity
     Dosage: 1 DOSAGE FORM(TABLET), QID, PRN, UPTO 2 WEEKS
     Route: 048
  5. DICYCLOMINE [Concomitant]
     Active Substance: DICYCLOMINE HYDROCHLORIDE
     Indication: Irritable bowel syndrome
  6. DIPHENHYDRAMINE [Concomitant]
     Active Substance: DIPHENHYDRAMINE
     Indication: Product used for unknown indication
     Dosage: 1 DOSAGE FORM (CAPSULE)= 50 MG, 1 HOUR PRIOR TO CONTRAST SCAN
     Route: 048
  7. ESTRADIOL [Concomitant]
     Active Substance: ESTRADIOL
     Indication: Hormone replacement therapy
     Dosage: 10 MICROGRAM  Q10DAYS
     Route: 067
     Dates: start: 2005
  8. FLUTICASONE PROPIONATE [Concomitant]
     Active Substance: FLUTICASONE PROPIONATE
     Indication: Nasal congestion
     Dosage: 1 DOSAGE FORM (SPRAYS) , PRN
     Route: 045
     Dates: start: 20200428
  9. FOLIC ACID [Concomitant]
     Active Substance: FOLIC ACID
     Indication: Supplementation therapy
     Dosage: 800 MICROGRAM, BID
     Route: 048
     Dates: start: 20200302
  10. FOLIC ACID [Concomitant]
     Active Substance: FOLIC ACID
     Indication: Alopecia
     Dosage: 800 MILLIGRAM, QD
     Route: 048
     Dates: start: 202101
  11. LORATADINE [Concomitant]
     Active Substance: LORATADINE
     Indication: Product used for unknown indication
     Dosage: 10 MILLIGRAM, PRN (AS NEEDED)
     Route: 048
  12. MONTELUKAST [Concomitant]
     Active Substance: MONTELUKAST SODIUM
     Indication: Asthma
     Dosage: 10 MILLIGRAM, QD
     Route: 048
     Dates: start: 2000
  13. PREDNISONE [Concomitant]
     Active Substance: PREDNISONE
     Indication: Product used for unknown indication
     Dosage: 50 MILLIGRAM TID(13 HOURS, 7 HOURS AND 1 HOUR PRIOR TO CONTRAST SCAN)
     Route: 048
  14. TRIAMCINOLONE [Concomitant]
     Active Substance: TRIAMCINOLONE
     Indication: Dermatitis
     Dosage: 1 APPLICATION, PRN
     Route: 003
     Dates: start: 20200720
  15. TRIAMCINOLONE [Concomitant]
     Active Substance: TRIAMCINOLONE
     Indication: Xerosis
     Dosage: 1 APPLICATION, BID
     Route: 003
     Dates: start: 20210803
  16. TRIAMCINOLONE [Concomitant]
     Active Substance: TRIAMCINOLONE
     Indication: Pruritus
  17. UREA [Concomitant]
     Active Substance: UREA
     Indication: Product used for unknown indication
     Dosage: APPLY BID TO HANDS AND FEET AS NEEDED (COMPOUND 60G WITH LACTIC ACID 10%/GLYCERINE 10%/VANISHING CRE
     Route: 003
  18. VITAMIN D3 [Concomitant]
     Active Substance: CHOLECALCIFEROL
     Indication: Product used for unknown indication
     Dosage: (5000 UNITS/25 MICROGRAM, DAILY)
     Route: 048
  19. ZINC [Concomitant]
     Active Substance: ZINC
     Indication: Product used for unknown indication
     Dosage: UNK,  DAILY
     Route: 048
  20. PREMARIN [Concomitant]
     Active Substance: ESTROGENS, CONJUGATED
     Indication: Hormone replacement therapy
     Dosage: 1.25 MILLIGRAM, QD
     Route: 048
     Dates: start: 2000
  21. PREMARIN [Concomitant]
     Active Substance: ESTROGENS, CONJUGATED
     Indication: Hot flush
  22. PREMARIN [Concomitant]
     Active Substance: ESTROGENS, CONJUGATED
     Indication: Hyperhidrosis
  23. PREMARIN [Concomitant]
     Active Substance: ESTROGENS, CONJUGATED
     Indication: Anxiety
  24. BENADRYL [Concomitant]
     Active Substance: DIPHENHYDRAMINE HYDROCHLORIDE
     Indication: Oral dysaesthesia
     Dosage: 15 MILLILITRE, Q6H
     Route: 048
     Dates: start: 20200207
  25. LIDOCAINE VISCOUS [Concomitant]
     Active Substance: LIDOCAINE HYDROCHLORIDE
     Indication: Oral dysaesthesia
     Dosage: 15 MILLILITRE, Q6H
     Route: 048
     Dates: start: 20200207
  26. MYCOSTATIN [Concomitant]
     Active Substance: NYSTATIN
     Indication: Oral dysaesthesia
     Dosage: 15 MILLILITRE, Q6H
     Route: 048
     Dates: start: 20200207
  27. PHENYLEPHRINE [Concomitant]
     Active Substance: PHENYLEPHRINE HYDROCHLORIDE
     Indication: Haemorrhoids
     Dosage: 1 APPLICATION, PRN
     Route: 054
     Dates: start: 2009
  28. CYANOCOBALAMIN [Concomitant]
     Active Substance: CYANOCOBALAMIN
     Indication: Supplementation therapy
     Dosage: 1000 MILLIGRAM, QID
     Route: 048
     Dates: start: 20200302
  29. HERBALS\PLANTAGO OVATA SEED COAT [Concomitant]
     Active Substance: HERBALS\PLANTAGO OVATA SEED COAT
     Indication: Constipation
     Dosage: 5 DOSAGE FORM (CAPSULES), QD
     Route: 048
     Dates: start: 20200429
  30. IBUPROFEN [Concomitant]
     Active Substance: IBUPROFEN
     Indication: Myalgia
     Dosage: 800 MILLIGRAM, PRN
     Route: 048
     Dates: start: 20201013
  31. IBUPROFEN [Concomitant]
     Active Substance: IBUPROFEN
     Indication: Pleuritic pain
     Dosage: 800 MILLIGRAM, PRN
     Route: 048
     Dates: start: 20210102
  32. IBUPROFEN [Concomitant]
     Active Substance: IBUPROFEN
     Indication: Atelectasis
     Dosage: 800 MILLIGRAM, BID
     Route: 048
     Dates: start: 20211011
  33. IBUPROFEN [Concomitant]
     Active Substance: IBUPROFEN
     Indication: Chest pain
  34. IBUPROFEN [Concomitant]
     Active Substance: IBUPROFEN
     Indication: Arthralgia
  35. IBUPROFEN [Concomitant]
     Active Substance: IBUPROFEN
     Indication: Abdominal pain
  36. WITCH HAZEL [HAMAMELIS VIRGINIANA EXTRACT] [Concomitant]
     Indication: Anal inflammation
     Dosage: 1 APPLICATION, PRN
     Route: 003
     Dates: start: 20210803
  37. PHENYLEPHRINE HYDROCHLORIDE [Concomitant]
     Active Substance: PHENYLEPHRINE HYDROCHLORIDE
     Indication: Anal inflammation
     Dosage: 1 APPLICATION, PRN
     Route: 003
     Dates: start: 20210803
  38. BETAMETHASONE [Concomitant]
     Active Substance: BETAMETHASONE
     Indication: Palmar-plantar erythrodysaesthesia syndrome
     Dosage: 1 APPLICATION, PRN
     Route: 003
     Dates: start: 20210524
  39. ACETAMINOPHEN [Concomitant]
     Active Substance: ACETAMINOPHEN
     Indication: Pain
     Dosage: 500 MILLIGRAM, PRN
     Route: 048
     Dates: start: 20210106
  40. FOLATE SODIUM [Concomitant]
     Active Substance: FOLATE SODIUM
     Indication: Alopecia
     Dosage: 1333 MICROGRAM, QD
     Route: 048
     Dates: start: 202101
  41. ERGOCALCIFEROL\RETINOL [Concomitant]
     Active Substance: ERGOCALCIFEROL\RETINOL
     Indication: Pruritus
     Dosage: UNK, PRN
     Route: 003
     Dates: start: 20210501
  42. AMMONIUM LACTATE [Concomitant]
     Active Substance: AMMONIUM LACTATE
     Indication: Palmar-plantar erythrodysaesthesia syndrome
     Dosage: UNK, BID
     Route: 003
     Dates: start: 20210522
  43. ACETAMINOPHEN [Concomitant]
     Active Substance: ACETAMINOPHEN
     Indication: Arthralgia
     Dosage: 1000 MILLIGRAM, PRN
     Route: 048
     Dates: start: 20211011
  44. ACETAMINOPHEN [Concomitant]
     Active Substance: ACETAMINOPHEN
     Indication: Myalgia
  45. ACETAMINOPHEN [Concomitant]
     Active Substance: ACETAMINOPHEN
     Indication: Abdominal pain
  46. MIRALAX [Concomitant]
     Active Substance: POLYETHYLENE GLYCOL 3350
     Indication: Constipation
     Dosage: 17 GRAM, PRN
     Route: 048
     Dates: start: 20210105
  47. ONDANSETRON [Concomitant]
     Active Substance: ONDANSETRON
     Indication: Nausea
     Dosage: 4 MILLIGRAM, PRN
     Route: 048
     Dates: start: 20210831
  48. MOTRIN [Concomitant]
     Active Substance: IBUPROFEN
     Indication: Headache
     Dosage: 400 MILLIGRAM, PRN
     Route: 048
     Dates: start: 20220118
  49. POTASSIUM CHLORIDE [Concomitant]
     Active Substance: POTASSIUM CHLORIDE
     Indication: Hypokalaemia
     Dosage: 10 MICROGRAM, QD
     Route: 048
     Dates: start: 20220213
  50. BETAMETHASONE DIPROPIONATE [Concomitant]
     Active Substance: BETAMETHASONE DIPROPIONATE
     Indication: Palmar-plantar erythrodysaesthesia syndrome
     Dosage: UNK UNK, BID
     Route: 003
     Dates: start: 20210511
  51. BETAMETHASONE DIPROPIONATE [Concomitant]
     Active Substance: BETAMETHASONE DIPROPIONATE
     Dosage: UNK

REACTIONS (1)
  - Supraventricular extrasystoles [Recovered/Resolved]

NARRATIVE: CASE EVENT DATE: 20220322
